FAERS Safety Report 23527703 (Version 1)
Quarter: 2024Q1

REPORT INFORMATION
  Report Type: Spontaneous
  Country: US (occurrence: None)
  Receive Date: 20240215
  Receipt Date: 20240215
  Transmission Date: 20240410
  Serious: Yes (Other)
  Sender: FDA-Public Use
  Company Number: None

PATIENT
  Age: 57 Year
  Sex: Female
  Weight: 67 kg

DRUGS (7)
  1. INFED [Suspect]
     Active Substance: IRON DEXTRAN
     Indication: Iron deficiency anaemia
     Dosage: OTHER FREQUENCY : ONCE;?
     Route: 042
     Dates: start: 20240208, end: 20240208
  2. Vitamin C 500 mg PO daily [Concomitant]
  3. Vitamin D3 25 mcg PO daily [Concomitant]
  4. CoQ10 100 mg-100 unit PO daily [Concomitant]
  5. Enalapril Maleate 5 mg PO BID [Concomitant]
  6. Furosemide 20 mg PO daily [Concomitant]
  7. Zinc 50 mg PO daily [Concomitant]

REACTIONS (2)
  - Sneezing [None]
  - Throat irritation [None]

NARRATIVE: CASE EVENT DATE: 20240208
